FAERS Safety Report 11866868 (Version 3)
Quarter: 2017Q2

REPORT INFORMATION
  Report Type: Report from Study
  Country: CA (occurrence: CA)
  Receive Date: 20151224
  Receipt Date: 20170609
  Transmission Date: 20170829
  Serious: Yes (Other)
  Sender: FDA-Public Use
  Company Number: PHHY2015CA167726

PATIENT
  Age: 43 Year
  Sex: Male

DRUGS (1)
  1. GILENYA [Suspect]
     Active Substance: FINGOLIMOD HYDROCHLORIDE
     Indication: PRODUCT USED FOR UNKNOWN INDICATION
     Dosage: UNK
     Route: 048
     Dates: start: 20130521

REACTIONS (11)
  - Ataxia [Unknown]
  - Hypoaesthesia [Not Recovered/Not Resolved]
  - Paraparesis [Unknown]
  - Multiple sclerosis relapse [Unknown]
  - Paraesthesia [Unknown]
  - Limb discomfort [Unknown]
  - Gait spastic [Unknown]
  - Muscular weakness [Unknown]
  - Toothache [Unknown]
  - Cerebellar ataxia [Unknown]
  - Fatigue [Unknown]

NARRATIVE: CASE EVENT DATE: 20150802
